FAERS Safety Report 9848532 (Version 1)
Quarter: 2013Q4

REPORT INFORMATION
  Report Type: Spontaneous
  Country: US (occurrence: None)
  Receive Date: 20131224
  Receipt Date: 20131224
  Transmission Date: 20140711
  Serious: Yes (Other)
  Sender: FDA-Public Use
  Company Number: PHEH2013US007128

PATIENT
  Sex: Male
  Weight: 82.5 kg

DRUGS (3)
  1. EXJADE (*CGP 72670*) DISPERSIBLE TABLET, 500MG [Suspect]
     Indication: MYELODYSPLASTIC SYNDROME
     Dosage: 3 DF
  2. XARELTO (RIVAROXABAN) TABLET [Concomitant]
  3. LACTAID (TILACTASE) TABLET [Concomitant]

REACTIONS (3)
  - Anaemia [None]
  - Frequent bowel movements [None]
  - Fatigue [None]
